FAERS Safety Report 15941234 (Version 3)
Quarter: 2019Q2

REPORT INFORMATION
  Report Type: Spontaneous
  Country: US (occurrence: US)
  Receive Date: 20190208
  Receipt Date: 20190429
  Transmission Date: 20190711
  Serious: Yes (Other)
  Sender: FDA-Public Use
  Company Number: US-ASTRAZENECA-2018SF14751

PATIENT
  Sex: Female

DRUGS (26)
  1. LOSARTAN. [Concomitant]
     Active Substance: LOSARTAN
  2. METOPROLOL. [Concomitant]
     Active Substance: METOPROLOL
  3. CALCIUM ACETATE. [Concomitant]
     Active Substance: CALCIUM ACETATE
  4. ATORVASTATIN [Concomitant]
     Active Substance: ATORVASTATIN
  5. PRILOSEC OTC [Suspect]
     Active Substance: OMEPRAZOLE MAGNESIUM
     Route: 048
  6. HYDROXYZINE [Concomitant]
     Active Substance: HYDROXYZINE HYDROCHLORIDE
  7. MIRTAZAPINE. [Concomitant]
     Active Substance: MIRTAZAPINE
  8. OXYCODONE AND ACETAMINOPHEN [Concomitant]
     Active Substance: ACETAMINOPHEN\OXYCODONE HYDROCHLORIDE
  9. NEXIUM 24HR [Suspect]
     Active Substance: ESOMEPRAZOLE MAGNESIUM
     Route: 048
  10. PROTONIX [Suspect]
     Active Substance: PANTOPRAZOLE SODIUM
     Route: 065
     Dates: start: 20130627, end: 20170518
  11. PROTONIX [Suspect]
     Active Substance: PANTOPRAZOLE SODIUM
     Dosage: GENERIC PANTOPRAZOLE
     Route: 048
     Dates: start: 20160330, end: 20170515
  12. HYDRALAZINE [Concomitant]
     Active Substance: HYDRALAZINE HYDROCHLORIDE
  13. PRILOSEC [Suspect]
     Active Substance: OMEPRAZOLE MAGNESIUM
     Route: 048
     Dates: start: 201306, end: 201705
  14. PREVACID [Suspect]
     Active Substance: LANSOPRAZOLE
     Route: 065
  15. TRAZODONE [Concomitant]
     Active Substance: TRAZODONE HYDROCHLORIDE
  16. SIMVASTATIN. [Concomitant]
     Active Substance: SIMVASTATIN
  17. PRILOSEC [Suspect]
     Active Substance: OMEPRAZOLE MAGNESIUM
     Route: 048
     Dates: start: 20141015, end: 20170518
  18. BUMETANIDE. [Concomitant]
     Active Substance: BUMETANIDE
  19. SPIRONOLACTONE. [Concomitant]
     Active Substance: SPIRONOLACTONE
  20. ISOSORBIDE MONONITRATE. [Concomitant]
     Active Substance: ISOSORBIDE MONONITRATE
  21. NEXIUM [Suspect]
     Active Substance: ESOMEPRAZOLE MAGNESIUM
     Route: 048
  22. PROTONIX [Suspect]
     Active Substance: PANTOPRAZOLE SODIUM
     Route: 065
     Dates: start: 201306, end: 201705
  23. PREVACID 24 HR [Suspect]
     Active Substance: LANSOPRAZOLE
     Route: 065
  24. ONDANSETRON [Concomitant]
     Active Substance: ONDANSETRON
  25. ALPRAZOLAM. [Concomitant]
     Active Substance: ALPRAZOLAM
  26. INSULIN ASPART [Concomitant]
     Active Substance: INSULIN ASPART

REACTIONS (4)
  - Acute kidney injury [Unknown]
  - Renal injury [Unknown]
  - Chronic kidney disease [Unknown]
  - End stage renal disease [Unknown]
